FAERS Safety Report 7731051 (Version 2)
Quarter: 2012Q4

REPORT INFORMATION
  Report Type: 
  Country: US (occurrence: US)
  Receive Date: 20101222
  Receipt Date: 20121023
  Transmission Date: 20130627
  Serious: Yes (Hospitalization)
  Sender: FDA-Public Use
  Company Number: US-AMGEN-KDL422258

PATIENT
  Age: 28 Year
  Sex: Female

DRUGS (2)
  1. ENBREL [Suspect]
     Indication: PSORIATIC ARTHROPATHY
     Dosage: 50 mg, 2 times/wk
     Route: 058
     Dates: start: 20100623, end: 201010
  2. ENBREL [Suspect]
     Indication: PSORIASIS

REACTIONS (4)
  - Staphylococcal bacteraemia [Recovered/Resolved]
  - Cellulitis [Not Recovered/Not Resolved]
  - Drug ineffective [Not Recovered/Not Resolved]
  - Psoriasis [Not Recovered/Not Resolved]
